FAERS Safety Report 6193250-8 (Version None)
Quarter: 2009Q2

REPORT INFORMATION
  Report Type: 
  Country: None (occurrence: None)
  Receive Date: 20090518
  Receipt Date: 20090508
  Transmission Date: 20091009
  Serious: Yes (Death)
  Sender: FDA-Public Use
  Company Number: A0784454A

PATIENT
  Sex: Female
  Weight: 50 kg

DRUGS (2)
  1. AVANDIA [Suspect]
     Route: 048
     Dates: start: 20050501, end: 20070228
  2. METFORMIN HCL [Concomitant]
     Dosage: 500MG CUMULATIVE DOSE
     Dates: start: 20060201, end: 20070228

REACTIONS (1)
  - MYOCARDIAL INFARCTION [None]
